FAERS Safety Report 9891586 (Version 2)
Quarter: 2014Q1

REPORT INFORMATION
  Report Type: Spontaneous
  Country: US (occurrence: None)
  Receive Date: 20140210
  Receipt Date: 20140312
  Transmission Date: 20141002
  Serious: Yes (Hospitalization)
  Sender: FDA-Public Use
  Company Number: UTC-044158

PATIENT
  Age: 66 Year
  Sex: Female
  Weight: 161.4 kg

DRUGS (10)
  1. REMODULIN [Suspect]
     Indication: PULMONARY ARTERIAL HYPERTENSION
     Dosage: 27 UG/KG (0.01875 UG/KG, 1 IN 1 MIN), SUBCUTANEOUS
     Route: 058
     Dates: start: 20130914
  2. LETAIRIS [Suspect]
     Indication: PULMONARY ARTERIAL HYPERTENSION
     Route: 048
     Dates: start: 200804
  3. REVATIO [Suspect]
     Indication: PULMONARY ARTERIAL HYPERTENSION
     Route: 048
     Dates: start: 200803
  4. COUMADIN(WARFARIN) [Concomitant]
  5. SENSIPAR(CINACALCET HYDROCHLORIDE) [Concomitant]
  6. ASPIRIN(ACETYLSALICYLIC ACID)(TABLET) [Concomitant]
  7. PROCRIT(EPOETIN ALFA) [Concomitant]
  8. PROAMATINE(MIDODRINE HYDROCHLORIDE)(TABLET) [Concomitant]
  9. PRAVASTATIN SODIUM [Concomitant]
  10. RENAGEL(SEVELAMER HYDROCHLORIDE) [Concomitant]

REACTIONS (11)
  - Hypotension [None]
  - Dyspnoea [None]
  - Haemodialysis [None]
  - Chest discomfort [None]
  - Chest pain [None]
  - Hypoxia [None]
  - Atelectasis [None]
  - Cardiomegaly [None]
  - Diastolic dysfunction [None]
  - Mitral valve calcification [None]
  - Rales [None]
